FAERS Safety Report 7219563-6 (Version None)
Quarter: 2011Q1

REPORT INFORMATION
  Report Type: 
  Country: None (occurrence: None)
  Receive Date: 20110111
  Receipt Date: 20110105
  Transmission Date: 20110831
  Serious: Yes (Death, Hospitalization)
  Sender: FDA-Public Use
  Company Number: US-JNJFOC-20110101681

PATIENT
  Sex: Male

DRUGS (6)
  1. STELARA [Suspect]
     Indication: PSORIASIS
     Route: 058
  2. STELARA [Suspect]
     Route: 058
  3. VICODIN [Concomitant]
  4. FUROSEMIDE [Concomitant]
  5. FENATANYL [Concomitant]
  6. NORVASC [Concomitant]

REACTIONS (3)
  - HYPOTENSION [None]
  - OEDEMA PERIPHERAL [None]
  - DEATH [None]
